FAERS Safety Report 7074032-1 (Version None)
Quarter: 2010Q4

REPORT INFORMATION
  Report Type: 
  Country: None (occurrence: None)
  Receive Date: 20101029
  Receipt Date: 20101018
  Transmission Date: 20110411
  Serious: Yes (Hospitalization, Other)
  Sender: FDA-Public Use
  Company Number: FR-ELI_LILLY_AND_COMPANY-FR201009002824

PATIENT
  Age: 71 Year
  Sex: Female

DRUGS (5)
  1. FORTEO [Suspect]
     Indication: OSTEOPOROSIS
     Dosage: 20 UG, DAILY (1/D)
     Route: 058
     Dates: start: 20100105, end: 20100402
  2. ATENOLOL [Concomitant]
     Indication: HYPERTENSION
     Dosage: 50 MG, DAILY (1/D)
     Route: 048
  3. LEVOTHYROXINE [Concomitant]
     Indication: HYPOTHYROIDISM
     Dosage: 100 UG, DAILY (1/D)
     Route: 048
  4. TAHOR [Concomitant]
     Dosage: 10 MG, DAILY (1/D)
     Route: 048
  5. DEROXAT [Concomitant]
     Dosage: 20 MG, DAILY (1/D)
     Route: 048

REACTIONS (2)
  - ANAEMIA [None]
  - MULTIPLE MYELOMA [None]
